FAERS Safety Report 17596676 (Version 1)
Quarter: 2020Q1

REPORT INFORMATION
  Report Type: Spontaneous
  Country: US (occurrence: US)
  Receive Date: 20200330
  Receipt Date: 20200330
  Transmission Date: 20200409
  Serious: No
  Sender: FDA-Public Use
  Company Number: US-009507513-2003USA010316

PATIENT
  Age: 18 Year
  Sex: Female
  Weight: 81.63 kg

DRUGS (4)
  1. VIRTEC (CETIRIZINE HYDROCHLORIDE) [Concomitant]
     Dosage: UNK
  2. NEXPLANON [Suspect]
     Active Substance: ETONOGESTREL
     Indication: MENSTRUAL CYCLE MANAGEMENT
  3. NEXPLANON [Suspect]
     Active Substance: ETONOGESTREL
     Indication: CONTRACEPTION
     Dosage: 1 IMPLANT IN LEFT ARM FOR 3 YEARS
     Route: 059
     Dates: start: 20170303
  4. SINGULAIR [Concomitant]
     Active Substance: MONTELUKAST SODIUM
     Dosage: UNK

REACTIONS (5)
  - Back pain [Not Recovered/Not Resolved]
  - Product use in unapproved indication [Unknown]
  - Incorrect product administration duration [Unknown]
  - Oligomenorrhoea [Not Recovered/Not Resolved]
  - Implant site paraesthesia [Not Recovered/Not Resolved]

NARRATIVE: CASE EVENT DATE: 20170303
